FAERS Safety Report 12870459 (Version 2)
Quarter: 2017Q1

REPORT INFORMATION
  Report Type: Spontaneous
  Country: US (occurrence: US)
  Receive Date: 20161021
  Receipt Date: 20170208
  Transmission Date: 20170428
  Serious: No
  Sender: FDA-Public Use
  Company Number: US-LUNDBECK-DKLU2020769

PATIENT
  Sex: Male

DRUGS (2)
  1. NORTHERA [Suspect]
     Active Substance: DROXIDOPA
     Indication: PRODUCT USED FOR UNKNOWN INDICATION
     Route: 065
     Dates: start: 20160926
  2. NORTHERA [Suspect]
     Active Substance: DROXIDOPA
     Dosage: SCHEDULE B AND TITRATING OFF
     Route: 065

REACTIONS (5)
  - Abdominal pain upper [Unknown]
  - Bedridden [Unknown]
  - Malaise [Unknown]
  - Condition aggravated [Unknown]
  - Fatigue [Unknown]
